FAERS Safety Report 6788929-0 (Version None)
Quarter: 2010Q2

REPORT INFORMATION
  Report Type: 
  Country: None (occurrence: None)
  Receive Date: 20100623
  Receipt Date: 20080606
  Transmission Date: 20101027
  Serious: No
  Sender: FDA-Public Use
  Company Number: US-PFIZER INC-2008048736

PATIENT
  Age: 57 Year
  Sex: Male

DRUGS (2)
  1. GENOTROPIN [Suspect]
  2. MANNITOL [Suspect]

REACTIONS (4)
  - ARRHYTHMIA [None]
  - HYPERSENSITIVITY [None]
  - MALAISE [None]
  - PRURITUS [None]
